FAERS Safety Report 17156202 (Version 4)
Quarter: 2020Q1

REPORT INFORMATION
  Report Type: Spontaneous
  Country: HK (occurrence: HK)
  Receive Date: 20191216
  Receipt Date: 20200108
  Transmission Date: 20200409
  Serious: Yes (Other)
  Sender: FDA-Public Use
  Company Number: HK-JNJFOC-20191217448

PATIENT
  Age: 50 Year
  Sex: Male

DRUGS (3)
  1. REGAINE SOLUTION 5% [Suspect]
     Active Substance: MINOXIDIL
     Dosage: CORRECT DOSAGE
     Route: 061
     Dates: start: 20191220
  2. REGAINE SOLUTION 5% [Suspect]
     Active Substance: MINOXIDIL
     Dosage: USED THE CORRECT AMOUNT OF PRODUCT
     Route: 061
     Dates: start: 20191204
  3. REGAINE SOLUTION 5% [Suspect]
     Active Substance: MINOXIDIL
     Indication: PRODUCT USED FOR UNKNOWN INDICATION
     Route: 061
     Dates: start: 20190924, end: 20191130

REACTIONS (4)
  - Dandruff [Recovering/Resolving]
  - Alopecia [Recovering/Resolving]
  - Overdose [Unknown]
  - Application site pruritus [Not Recovered/Not Resolved]

NARRATIVE: CASE EVENT DATE: 20190924
